FAERS Safety Report 9592005 (Version 1)
Quarter: 2013Q4

REPORT INFORMATION
  Report Type: Spontaneous
  Country: US (occurrence: US)
  Receive Date: 20131004
  Receipt Date: 20131004
  Transmission Date: 20140711
  Serious: Yes (Other)
  Sender: FDA-Public Use
  Company Number: US-AMGEN-USASP2013068341

PATIENT
  Age: 48 Year
  Sex: Female

DRUGS (3)
  1. PROLIA [Suspect]
     Indication: OSTEOPOROSIS
     Route: 065
  2. CALCIUM [Concomitant]
  3. MULTIVITAMINS [Concomitant]

REACTIONS (1)
  - Transient ischaemic attack [Unknown]
